FAERS Safety Report 10923010 (Version 1)
Quarter: 2015Q1

REPORT INFORMATION
  Report Type: Spontaneous
  Country: CN (occurrence: CN)
  Receive Date: 20150317
  Receipt Date: 20150317
  Transmission Date: 20150721
  Serious: Yes (Other)
  Sender: FDA-Public Use
  Company Number: CN-BAXTER-2015BAX013313

PATIENT
  Age: 2 Year
  Sex: Male
  Weight: 11 kg

DRUGS (4)
  1. ANDROGRAPHOLIDE [Suspect]
     Active Substance: ANDROGRAPHOLIDE
     Indication: VIRAL INFECTION
     Route: 041
     Dates: start: 20140728, end: 20140728
  2. 5% GLUCOSE  INJECTION [Suspect]
     Active Substance: DEXTROSE
     Indication: MEDICATION DILUTION
     Route: 041
     Dates: start: 20140728, end: 20140728
  3. CEFODIZIME SODIUM [Suspect]
     Active Substance: CEFODIZIME SODIUM
     Indication: INFECTION
     Route: 041
     Dates: start: 20140728, end: 20140728
  4. 0.9% SODIUM CHLORIDE INJECTION [Suspect]
     Active Substance: SODIUM CHLORIDE
     Indication: MEDICATION DILUTION
     Route: 041
     Dates: start: 20140728, end: 20140728

REACTIONS (1)
  - Rash erythematous [Recovering/Resolving]

NARRATIVE: CASE EVENT DATE: 20140728
